FAERS Safety Report 4488661-2 (Version None)
Quarter: 2004Q4

REPORT INFORMATION
  Report Type: 
  Country: None (occurrence: None)
  Receive Date: 20041026
  Receipt Date: 20041008
  Transmission Date: 20050328
  Serious: Yes (Hospitalization, Other)
  Sender: FDA-Public Use
  Company Number: USA041080699

PATIENT
  Age: 84 Year
  Sex: Female
  Weight: 84 kg

DRUGS (5)
  1. HUMULIN R [Suspect]
     Indication: DRUG USE FOR UNKNOWN INDICATION
     Route: 065
     Dates: start: 20040801
  2. PREDNISONE [Concomitant]
  3. ZITHROMAX [Concomitant]
  4. CEPHALEXIN [Concomitant]
  5. GLIPIZIDE [Concomitant]

REACTIONS (6)
  - ABDOMINAL DISTENSION [None]
  - BLOOD GLUCOSE INCREASED [None]
  - CHRONIC OBSTRUCTIVE AIRWAYS DISEASE [None]
  - COUGH [None]
  - DYSPNOEA [None]
  - FATIGUE [None]
